FAERS Safety Report 9157128 (Version 1)
Quarter: 2013Q1

REPORT INFORMATION
  Report Type: Spontaneous
  Country: US (occurrence: None)
  Receive Date: 20130308
  Receipt Date: 20130308
  Transmission Date: 20140127
  Serious: Yes (Other)
  Sender: FDA-Public Use
  Company Number: None

PATIENT
  Age: 82 Year
  Sex: Female
  Weight: 45.36 kg

DRUGS (7)
  1. VESICARE [Suspect]
     Indication: INCONTINENCE
     Dosage: JAN TO MID. FEB ?1 TABLET DAILY ORAL
     Route: 048
  2. PLAVIX [Concomitant]
  3. METOPROLOL SUCCER [Concomitant]
  4. RAMIPRIL [Concomitant]
  5. MULTIPLE VITAMIN [Concomitant]
  6. SIMVASTATIN [Concomitant]
  7. BONIVA [Concomitant]

REACTIONS (4)
  - Asthenia [None]
  - Gait disturbance [None]
  - Balance disorder [None]
  - Fall [None]
